FAERS Safety Report 9783869 (Version 3)
Quarter: 2014Q1

REPORT INFORMATION
  Report Type: Spontaneous
  Country: US (occurrence: US)
  Receive Date: 20131226
  Receipt Date: 20140217
  Transmission Date: 20141002
  Serious: Yes (Other)
  Sender: FDA-Public Use
  Company Number: US-PFIZER INC-2013365290

PATIENT
  Age: 58 Year
  Sex: Male

DRUGS (4)
  1. VFEND [Suspect]
     Indication: ASPERGILLUS INFECTION
     Dosage: 200 MG, 2X/DAY
     Route: 048
     Dates: start: 20131106, end: 201311
  2. SPIRONOLACTONE [Concomitant]
     Indication: HYPERTENSION
     Dosage: UNK
  3. FLOVENT [Concomitant]
     Dosage: UNK
     Route: 045
  4. ALBUTEROL [Concomitant]
     Dosage: UNK
     Route: 045

REACTIONS (14)
  - Suicidal ideation [Unknown]
  - Feeling abnormal [Unknown]
  - Malaise [Unknown]
  - Renal pain [Unknown]
  - Chromaturia [Unknown]
  - Euphoric mood [Recovered/Resolved]
  - Headache [Recovered/Resolved]
  - Respiratory disorder [Recovered/Resolved]
  - Back pain [Recovered/Resolved]
  - Pain [Recovered/Resolved]
  - Vitreous floaters [Unknown]
  - Insomnia [Unknown]
  - Abnormal dreams [Unknown]
  - Visual impairment [Unknown]
